FAERS Safety Report 8006599-0 (Version None)
Quarter: 2011Q4

REPORT INFORMATION
  Report Type: 
  Country: None (occurrence: None)
  Receive Date: 20111227
  Receipt Date: 20110715
  Transmission Date: 20120403
  Serious: No
  Sender: FDA-Public Use
  Company Number: US-BAYER-2011-062418

PATIENT
  Sex: Female

DRUGS (9)
  1. CIPROFLOXACIN [Suspect]
  2. ALPHA LIPIDS [Concomitant]
  3. HYDROCHLOROTHIAZIDE [Concomitant]
  4. FIBER [Concomitant]
  5. VITAMIN B COMPLEX CAP [Concomitant]
  6. CALCIUM ACETATE [Interacting]
  7. CARDIA [Concomitant]
  8. IT. SUPPLEMENTS [Concomitant]
  9. LOPRESSOR [Concomitant]

REACTIONS (1)
  - NO ADVERSE EVENT [None]
